FAERS Safety Report 8292275-6 (Version None)
Quarter: 2012Q2

REPORT INFORMATION
  Report Type: 
  Country: None (occurrence: None)
  Receive Date: 20120417
  Receipt Date: 20120411
  Transmission Date: 20120825
  Serious: Yes (Hospitalization, Other)
  Sender: FDA-Public Use
  Company Number: IT-ABBOTT-12P-083-0917452-00

PATIENT
  Age: 70 Year
  Sex: Female

DRUGS (2)
  1. ANTIHYPERTENSIVE AGENT [Concomitant]
     Indication: HYPERTENSION
  2. HUMIRA [Suspect]
     Indication: PSORIASIS
     Dosage: (80MG), 1 WEEK
     Dates: start: 20120301, end: 20120320

REACTIONS (4)
  - MYOCARDIAL INFARCTION [None]
  - INCORRECT DOSE ADMINISTERED [None]
  - FATIGUE [None]
  - DYSPNOEA [None]
